FAERS Safety Report 4592827-0 (Version None)
Quarter: 2005Q1

REPORT INFORMATION
  Report Type: 
  Country: None (occurrence: None)
  Receive Date: 20050228
  Receipt Date: 20050216
  Transmission Date: 20050727
  Serious: Yes (Other)
  Sender: FDA-Public Use
  Company Number: 2005-02-0539

PATIENT

DRUGS (3)
  1. ASPIRIN [Suspect]
     Route: 065
  2. INTEGRILIN [Suspect]
     Route: 042
     Dates: start: 20050208
  3. HEPARIN [Suspect]
     Route: 065

REACTIONS (1)
  - THROMBOCYTOPENIA [None]
